FAERS Safety Report 8274551-6 (Version None)
Quarter: 2012Q2

REPORT INFORMATION
  Report Type: 
  Country: None (occurrence: None)
  Receive Date: 20120411
  Receipt Date: 20120327
  Transmission Date: 20120825
  Serious: Yes (Other)
  Sender: FDA-Public Use
  Company Number: JP-VERTEX PHARMACEUTICALS INC.-AE-2012-004047

PATIENT
  Age: 24 Year
  Sex: Male

DRUGS (3)
  1. TELAVIC (TELAPREVIR) [Suspect]
     Route: 048
     Dates: start: 20120306, end: 20120307
  2. INTERFERON [Concomitant]
     Route: 058
     Dates: start: 20120306, end: 20120307
  3. REBETOL [Concomitant]
     Route: 048
     Dates: start: 20120306, end: 20120307

REACTIONS (1)
  - ATRIOVENTRICULAR BLOCK SECOND DEGREE [None]
